FAERS Safety Report 4711309-6 (Version None)
Quarter: 2005Q3

REPORT INFORMATION
  Report Type: 
  Country: None (occurrence: None)
  Receive Date: 20050711
  Receipt Date: 20050623
  Transmission Date: 20060218
  Serious: Yes (Death, Hospitalization, Other)
  Sender: FDA-Public Use
  Company Number: 2005-01358

PATIENT
  Age: 78 Year
  Sex: Female
  Weight: 68.6 kg

DRUGS (2)
  1. VELCADE [Suspect]
     Indication: MULTIPLE MYELOMA
     Dosage: 7.02 MG, 2/WEEK, INTRAVENOUS
     Route: 042
     Dates: start: 20050405
  2. DOXIL [Suspect]
     Indication: MULTIPLE MYELOMA
     Dosage: 54.00 MG, Q3WEEKS, INTRAVENOUS
     Route: 042
     Dates: start: 20050405, end: 20050425

REACTIONS (20)
  - ANOREXIA [None]
  - ATRIAL FIBRILLATION [None]
  - CARDIAC FAILURE CONGESTIVE [None]
  - CATHETER SITE INFECTION [None]
  - CLOSTRIDIUM COLITIS [None]
  - DEHYDRATION [None]
  - HYPOTENSION [None]
  - LARYNGEAL DISORDER [None]
  - LUNG INFECTION [None]
  - LUNG INFILTRATION [None]
  - MENTAL STATUS CHANGES [None]
  - PLEURAL EFFUSION [None]
  - PNEUMONIA ASPIRATION [None]
  - PNEUMONITIS [None]
  - RESPIRATORY FAILURE [None]
  - SEPSIS SYNDROME [None]
  - SOMNOLENCE [None]
  - STAPHYLOCOCCAL INFECTION [None]
  - SYSTEMIC INFLAMMATORY RESPONSE SYNDROME [None]
  - VOCAL CORD PARESIS [None]
